FAERS Safety Report 8521587-3 (Version None)
Quarter: 2012Q3

REPORT INFORMATION
  Report Type: 
  Country: None (occurrence: None)
  Receive Date: 20120719
  Receipt Date: 20120715
  Transmission Date: 20120928
  Serious: Yes (Disabling, Other)
  Sender: FDA-Public Use
  Company Number: PHHY2012CO042519

PATIENT
  Sex: Male

DRUGS (3)
  1. TRAZODONE HYDROCHLORIDE [Concomitant]
     Dosage: UNK UKN, UNK
  2. STALEVO 100 [Suspect]
     Indication: PARKINSON'S DISEASE
     Dosage: 5 DF, PER DAY
     Route: 048
     Dates: start: 20050101
  3. MIRAPEX [Concomitant]
     Dosage: THREE TIMES DAILY

REACTIONS (7)
  - MUSCULOSKELETAL STIFFNESS [None]
  - DRUG INEFFECTIVE [None]
  - DYSSTASIA [None]
  - PARKINSONISM [None]
  - HYPOKINESIA [None]
  - DYSKINESIA [None]
  - GAIT DISTURBANCE [None]
